FAERS Safety Report 11051767 (Version 1)
Quarter: 2015Q2

REPORT INFORMATION
  Report Type: Spontaneous
  Country: BR (occurrence: BR)
  Receive Date: 20150421
  Receipt Date: 20150421
  Transmission Date: 20150821
  Serious: Yes (Other)
  Sender: FDA-Public Use
  Company Number: BR-BAXTER-2015BAX020187

PATIENT
  Age: 53 Year
  Sex: Female
  Weight: 59 kg

DRUGS (12)
  1. CLORETO DE S?DIO - BAXTER [Suspect]
     Active Substance: SODIUM CHLORIDE
     Indication: MEDICATION DILUTION
     Route: 065
     Dates: start: 20150302
  2. TECNOCARB [Suspect]
     Active Substance: CARBOPLATIN
     Indication: CHEMOTHERAPY
     Route: 065
     Dates: start: 20150302
  3. NORTRIPTILIN [Concomitant]
     Indication: PRODUCT USED FOR UNKNOWN INDICATION
     Route: 065
  4. SODIUM CHLORIDE. [Suspect]
     Active Substance: SODIUM CHLORIDE
     Indication: MEDICATION DILUTION
     Route: 065
     Dates: start: 20150302
  5. OMEPRAZOLE. [Concomitant]
     Active Substance: OMEPRAZOLE
     Indication: PRODUCT USED FOR UNKNOWN INDICATION
     Route: 065
  6. RANITIDIN [Suspect]
     Active Substance: RANITIDINE HYDROCHLORIDE
     Indication: PREMEDICATION
     Route: 065
     Dates: start: 20150302
  7. ZOFRAN [Suspect]
     Active Substance: ONDANSETRON HYDROCHLORIDE
     Indication: PREMEDICATION
     Route: 065
     Dates: start: 20150302
  8. PLASIL [Suspect]
     Active Substance: METOCLOPRAMIDE HYDROCHLORIDE
     Indication: PREMEDICATION
     Route: 065
     Dates: start: 20150302
  9. EVOTAXEL [Suspect]
     Active Substance: PACLITAXEL
     Indication: CHEMOTHERAPY
     Route: 065
     Dates: start: 20150302
  10. DEXAMETHASONE. [Suspect]
     Active Substance: DEXAMETHASONE
     Indication: PREMEDICATION
     Route: 065
     Dates: start: 20150302
  11. ALENDRONATO [Concomitant]
     Indication: PRODUCT USED FOR UNKNOWN INDICATION
     Route: 065
  12. BENADRYL [Suspect]
     Active Substance: DIPHENHYDRAMINE HYDROCHLORIDE
     Indication: PREMEDICATION
     Route: 065
     Dates: start: 20150302

REACTIONS (3)
  - Flushing [Recovered/Resolved]
  - Dyspnoea [Recovered/Resolved]
  - Malaise [Recovered/Resolved]

NARRATIVE: CASE EVENT DATE: 20150302
